FAERS Safety Report 21621321 (Version 1)
Quarter: 2022Q4

REPORT INFORMATION
  Report Type: Spontaneous
  Country: US (occurrence: US)
  Receive Date: 20221121
  Receipt Date: 20221121
  Transmission Date: 20230113
  Serious: No
  Sender: FDA-Public Use
  Company Number: US-ABBVIE-4207181

PATIENT
  Age: 72 Year
  Sex: Male
  Weight: 77.11 kg

DRUGS (4)
  1. IBRUTINIB [Suspect]
     Active Substance: IBRUTINIB
     Indication: Chronic lymphocytic leukaemia
     Dosage: STRENGTH 140 MILLIGRAM
     Route: 048
     Dates: start: 2017
  2. LISINOPRIL [Concomitant]
     Active Substance: LISINOPRIL
     Indication: Hypertension
     Dosage: 10 OR 15 YEARS AGO
  3. ASPIRIN [Concomitant]
     Active Substance: ASPIRIN
     Indication: Product used for unknown indication
     Dosage: LOW DOSE ?10 OR 15 YEARS AGO
  4. PFIZER-BIONTECH COVID-19 VACCINE, BIVALENT [Suspect]
     Active Substance: BNT162B2 OMICRON (BA.4/BA.5)\TOZINAMERAN
     Indication: COVID-19 immunisation
     Dosage: 1 IN ONCE
     Route: 030
     Dates: start: 202209, end: 202209

REACTIONS (4)
  - White blood cell count decreased [Not Recovered/Not Resolved]
  - Myalgia [Unknown]
  - Muscle spasms [Unknown]
  - Fatigue [Unknown]

NARRATIVE: CASE EVENT DATE: 20221115
